FAERS Safety Report 4775130-5 (Version None)
Quarter: 2005Q3

REPORT INFORMATION
  Report Type: 
  Country: None (occurrence: None)
  Receive Date: 20050920
  Receipt Date: 20050909
  Transmission Date: 20060218
  Serious: Yes (Other)
  Sender: FDA-Public Use
  Company Number: 2005117058

PATIENT
  Age: 61 Year
  Sex: Female

DRUGS (6)
  1. AROMASIN [Suspect]
     Indication: BREAST CANCER METASTATIC
     Dosage: 25 MG (25 MG, EVERY DAY), ORAL
     Route: 048
     Dates: start: 20050523, end: 20050815
  2. LIBRAX [Concomitant]
  3. LOPRESSOR [Concomitant]
  4. LODINE [Concomitant]
  5. SINGULAIR ^DIECKMANN^ (MONTELUKAST SODIUM) [Concomitant]
  6. VITAMIN B12 FOR INJECTION (CYANOCOBALAMIN) [Concomitant]

REACTIONS (1)
  - PULMONARY FIBROSIS [None]
